FAERS Safety Report 5690856-7 (Version None)
Quarter: 2008Q2

REPORT INFORMATION
  Report Type: 
  Country: None (occurrence: None)
  Receive Date: 20080401
  Receipt Date: 20080320
  Transmission Date: 20081010
  Serious: Yes (Life-Threatening)
  Sender: FDA-Public Use
  Company Number: GB-MERCK-0803GBR00086

PATIENT
  Age: 77 Year
  Sex: Female

DRUGS (10)
  1. ZOCOR [Suspect]
     Route: 065
  2. CIPROFLOXACIN [Suspect]
     Route: 065
  3. ASPIRIN [Concomitant]
     Route: 065
  4. CIMETIDINE [Concomitant]
     Route: 065
  5. FUROSEMIDE [Concomitant]
     Route: 065
  6. ISOSORBIDE MONONITRATE [Concomitant]
     Route: 065
  7. LEVOTHYROXINE SODIUM [Concomitant]
     Route: 065
  8. NICORANDIL [Concomitant]
     Route: 065
  9. PINDOLOL [Concomitant]
     Route: 065
  10. SIMVASTATIN [Concomitant]
     Route: 065

REACTIONS (3)
  - BLOOD CREATININE INCREASED [None]
  - CHROMATURIA [None]
  - RHABDOMYOLYSIS [None]
